FAERS Safety Report 13354861 (Version 1)
Quarter: 2017Q1

REPORT INFORMATION
  Report Type: Spontaneous
  Country: NL (occurrence: NL)
  Receive Date: 20170321
  Receipt Date: 20170321
  Transmission Date: 20170429
  Serious: Yes (Other)
  Sender: FDA-Public Use
  Company Number: NL-TEVA-741865ISR

PATIENT
  Age: 65 Year
  Sex: Male

DRUGS (3)
  1. IRBESARTAN AUROBINDO, TABLET 150MG [Suspect]
     Active Substance: IRBESARTAN
     Indication: HYPERTENSION
     Dosage: 300 MILLIGRAM DAILY;
  2. IRBESARTAN AUROBINDO, TABLET 150MG [Suspect]
     Active Substance: IRBESARTAN
     Dosage: 150 MILLIGRAM DAILY;
  3. ACETYLSALICYLIC ACID [Concomitant]
     Active Substance: ASPIRIN
     Dosage: 30MG

REACTIONS (7)
  - Muscle spasms [Not Recovered/Not Resolved]
  - Angina pectoris [Recovered/Resolved]
  - Condition aggravated [Not Recovered/Not Resolved]
  - Drug ineffective [Unknown]
  - Malaise [Not Recovered/Not Resolved]
  - Fatigue [Not Recovered/Not Resolved]
  - Myalgia [Not Recovered/Not Resolved]
